FAERS Safety Report 6161641-7 (Version None)
Quarter: 2009Q2

REPORT INFORMATION
  Report Type: 
  Country: None (occurrence: None)
  Receive Date: 20090417
  Receipt Date: 20080815
  Transmission Date: 20091009
  Serious: Yes (Hospitalization)
  Sender: FDA-Public Use
  Company Number: FDB-2008-040

PATIENT
  Age: 66 Year
  Sex: Female

DRUGS (1)
  1. TECHNETIUM TC 99M SULFUR COLLOID KIT [Suspect]
     Indication: SCAN BONE MARROW
     Dosage: 10MCI, IV INJECTION
     Route: 042
     Dates: start: 20080814

REACTIONS (4)
  - DYSARTHRIA [None]
  - EATING DISORDER [None]
  - PROTRUSION TONGUE [None]
  - SWOLLEN TONGUE [None]
